FAERS Safety Report 7465532-0 (Version None)
Quarter: 2011Q2

REPORT INFORMATION
  Report Type: 
  Country: None (occurrence: None)
  Receive Date: 20110509
  Receipt Date: 20110430
  Transmission Date: 20111010
  Serious: Yes (Hospitalization)
  Sender: FDA-Public Use
  Company Number: CO-ROCHE-774070

PATIENT
  Sex: Female

DRUGS (3)
  1. MIRCERA [Suspect]
     Route: 058
     Dates: start: 20110105
  2. PREDNISOLONE [Concomitant]
     Indication: ANTIINFLAMMATORY THERAPY
     Route: 048
  3. METFORMIN [Concomitant]
     Indication: DIABETES MELLITUS MANAGEMENT
     Route: 048

REACTIONS (2)
  - PHLEBITIS [None]
  - KETOACIDOSIS [None]
